FAERS Safety Report 25577473 (Version 1)
Quarter: 2025Q3

REPORT INFORMATION
  Report Type: Spontaneous
  Country: US (occurrence: US)
  Receive Date: 20250718
  Receipt Date: 20250718
  Transmission Date: 20251020
  Serious: Yes (Death, Other)
  Sender: INCYTE
  Company Number: US-INCYTE CORPORATION-2025IN007881

PATIENT
  Age: 72 Year

DRUGS (1)
  1. JAKAFI [Suspect]
     Active Substance: RUXOLITINIB
     Indication: Polycythaemia vera
     Dosage: 30 MILLIGRAM, QD (2 TABLETS (20MG) IN THE MORNING AND 1 TABLET (10MG) IN THE EVENING)

REACTIONS (1)
  - Death [Fatal]
